FAERS Safety Report 9766771 (Version 2)
Quarter: 2014Q1

REPORT INFORMATION
  Report Type: Spontaneous
  Country: US (occurrence: US)
  Receive Date: 20131217
  Receipt Date: 20140120
  Transmission Date: 20141002
  Serious: No
  Sender: FDA-Public Use
  Company Number: US-BIOGENIDEC-2013BI118597

PATIENT
  Age: 64 Year
  Sex: Female

DRUGS (18)
  1. TECFIDERA [Suspect]
     Indication: PRODUCT USED FOR UNKNOWN INDICATION
  2. AMPYRA [Concomitant]
     Indication: MULTIPLE SCLEROSIS
     Route: 048
  3. AMPYRA [Concomitant]
     Indication: MULTIPLE SCLEROSIS
     Route: 048
     Dates: start: 201303
  4. AMPYRA [Concomitant]
     Indication: MULTIPLE SCLEROSIS
     Route: 048
     Dates: start: 201305
  5. AMPYRA [Concomitant]
     Indication: MULTIPLE SCLEROSIS
     Route: 048
     Dates: start: 201306
  6. AMPYRA [Concomitant]
     Indication: MULTIPLE SCLEROSIS
     Route: 048
     Dates: start: 201306
  7. IMODIUM [Concomitant]
  8. METOPROLOL TARTRATE [Concomitant]
  9. TYLENOL EXTRA STRENGTH [Concomitant]
  10. VITAMIN D [Concomitant]
  11. COLECALCIFEROL [Concomitant]
  12. CENTRUM SILVER [Concomitant]
  13. VITAMIN B12 [Concomitant]
  14. TYVASO [Concomitant]
  15. PRAVASTATIN SODIUM [Concomitant]
  16. OMPRAZOLE [Concomitant]
  17. REBIF [Concomitant]
  18. CALCIUM + VIT D [Concomitant]

REACTIONS (5)
  - Pain [Not Recovered/Not Resolved]
  - Chills [Unknown]
  - Tinnitus [Unknown]
  - Headache [Unknown]
  - Drug ineffective [Unknown]
